FAERS Safety Report 12495173 (Version 21)
Quarter: 2020Q1

REPORT INFORMATION
  Report Type: Report from Study
  Country: CA (occurrence: CA)
  Receive Date: 20160624
  Receipt Date: 20200117
  Transmission Date: 20200409
  Serious: Yes (Hospitalization, Other)
  Sender: FDA-Public Use
  Company Number: PHHY2012CA115890

PATIENT
  Age: 70 Year
  Sex: Male

DRUGS (3)
  1. SANDOSTATIN LAR DEPOT [Suspect]
     Active Substance: OCTREOTIDE ACETATE
     Indication: ACROMEGALY
     Dosage: 40 MG, QMO, (ONCE A MONTH)
     Route: 030
     Dates: start: 20021031
  2. SANDOSTATIN LAR DEPOT [Suspect]
     Active Substance: OCTREOTIDE ACETATE
     Dosage: 40 MG, QMO (ONCE A MONTH)
     Route: 030
     Dates: start: 20121112
  3. SANDOSTATIN LAR DEPOT [Suspect]
     Active Substance: OCTREOTIDE ACETATE
     Dosage: UNK
     Route: 030
     Dates: start: 20191021

REACTIONS (36)
  - Intestinal obstruction [Unknown]
  - Glaucoma [Unknown]
  - Cystitis [Recovered/Resolved]
  - Soft tissue injury [Unknown]
  - Pituitary cyst [Unknown]
  - Asthenia [Unknown]
  - Injection site pain [Unknown]
  - Crohn^s disease [Unknown]
  - Cataract [Unknown]
  - Bowel movement irregularity [Recovering/Resolving]
  - Dysuria [Recovered/Resolved]
  - Nephrolithiasis [Unknown]
  - Prostatomegaly [Unknown]
  - Blood pressure diastolic increased [Unknown]
  - Contusion [Unknown]
  - Confusional state [Unknown]
  - Inguinal hernia [Unknown]
  - Therapeutic product effect decreased [Unknown]
  - Constipation [Recovering/Resolving]
  - Sleep apnoea syndrome [Unknown]
  - Micturition urgency [Recovered/Resolved]
  - Blood pressure systolic increased [Unknown]
  - Pain [Unknown]
  - Injection site mass [Not Recovered/Not Resolved]
  - Abdominal pain [Unknown]
  - Dysstasia [Unknown]
  - Pollakiuria [Recovered/Resolved]
  - Blood urine present [Recovered/Resolved]
  - Back pain [Recovering/Resolving]
  - Renal cyst [Unknown]
  - Fatigue [Unknown]
  - Fall [Unknown]
  - Pain in extremity [Unknown]
  - Pituitary enlargement [Unknown]
  - Neoplasm malignant [Recovered/Resolved]
  - Heart rate increased [Unknown]

NARRATIVE: CASE EVENT DATE: 20140403
